FAERS Safety Report 17642611 (Version 1)
Quarter: 2020Q2

REPORT INFORMATION
  Report Type: Spontaneous
  Country: US (occurrence: US)
  Receive Date: 20200407
  Receipt Date: 20200407
  Transmission Date: 20200713
  Serious: No
  Sender: FDA-Public Use
  Company Number: None

PATIENT
  Age: 46 Year
  Sex: Male

DRUGS (1)
  1. BOTOX [Suspect]
     Active Substance: ONABOTULINUMTOXINA
     Indication: HEMIPLEGIA
     Dosage: FREQUENCY: OTHER?
     Route: 030
     Dates: start: 201901

REACTIONS (3)
  - Product dispensing error [None]
  - Product prescribing error [None]
  - Transcription medication error [None]

NARRATIVE: CASE EVENT DATE: 20200331
